FAERS Safety Report 5858933-5 (Version None)
Quarter: 2008Q3

REPORT INFORMATION
  Report Type: 
  Country: None (occurrence: None)
  Receive Date: 20080825
  Receipt Date: 20080807
  Transmission Date: 20090109
  Serious: Yes (Other)
  Sender: FDA-Public Use
  Company Number: 8029430

PATIENT
  Age: 24 Month
  Sex: Male
  Weight: 10.9 kg

DRUGS (5)
  1. KEPPRA [Suspect]
     Indication: PARTIAL SEIZURES
     Dosage: 60 MG/KG /D PO
     Route: 048
  2. KEPPRA [Suspect]
     Indication: PARTIAL SEIZURES
     Dosage: 40 MG/KG /D PO
     Route: 048
  3. CARBAMAZEPINE [Concomitant]
  4. CARBAMAZEPINE [Concomitant]
  5. OXCARBAMAZEPINE [Concomitant]

REACTIONS (5)
  - APNOEIC ATTACK [None]
  - CONVULSION [None]
  - DISEASE RECURRENCE [None]
  - PSYCHOMOTOR HYPERACTIVITY [None]
  - SOMNOLENCE [None]
